FAERS Safety Report 14657378 (Version 3)
Quarter: 2018Q2

REPORT INFORMATION
  Report Type: Spontaneous
  Country: US (occurrence: US)
  Receive Date: 20180320
  Receipt Date: 20180521
  Transmission Date: 20180711
  Serious: Yes (Hospitalization, Other)
  Sender: FDA-Public Use
  Company Number: US-SUN PHARMACEUTICAL INDUSTRIES LTD-2018US-166966

PATIENT
  Age: 47 Year
  Sex: Male

DRUGS (2)
  1. PREDNISONE. [Suspect]
     Active Substance: PREDNISONE
     Indication: PRODUCT USED FOR UNKNOWN INDICATION
     Dosage: UNK
     Route: 065
  2. BACTRIM [Suspect]
     Active Substance: SULFAMETHOXAZOLE\TRIMETHOPRIM
     Indication: UPPER RESPIRATORY TRACT INFECTION
     Dosage: UNK
     Route: 065

REACTIONS (9)
  - Intra-abdominal haemorrhage [Recovering/Resolving]
  - Histiocytosis haematophagic [Recovering/Resolving]
  - Haematoma [Recovering/Resolving]
  - Haematemesis [Recovering/Resolving]
  - Viral oesophagitis [Unknown]
  - Coagulopathy [Recovering/Resolving]
  - Hypotension [Recovering/Resolving]
  - Drug-induced liver injury [Recovering/Resolving]
  - Cytomegalovirus oesophagitis [Unknown]
